FAERS Safety Report 4846027-7 (Version None)
Quarter: 2005Q4

REPORT INFORMATION
  Report Type: 
  Country: None (occurrence: None)
  Receive Date: 20051130
  Receipt Date: 20051121
  Transmission Date: 20060501
  Serious: Yes (Other)
  Sender: FDA-Public Use
  Company Number: 2005-11-1340

PATIENT
  Age: 80 Year
  Sex: Male
  Weight: 86 kg

DRUGS (2)
  1. EULEXIN [Suspect]
     Indication: PROSTATE CANCER
     Dosage: ORAL
     Route: 048
     Dates: start: 19890101
  2. LUPRON [Suspect]
     Indication: PROSTATE CANCER
     Dosage: 22.5MG Q3M INTRAMUSCULAR
     Route: 030
     Dates: start: 20010101

REACTIONS (6)
  - MYELODYSPLASTIC SYNDROME [None]
  - OEDEMA PERIPHERAL [None]
  - PRURITUS [None]
  - RASH MACULAR [None]
  - RETINAL VASCULAR OCCLUSION [None]
  - VISUAL ACUITY REDUCED [None]
